FAERS Safety Report 16393350 (Version 4)
Quarter: 2019Q3

REPORT INFORMATION
  Report Type: Report from Study
  Country: KR (occurrence: KR)
  Receive Date: 20190605
  Receipt Date: 20190801
  Transmission Date: 20191004
  Serious: Yes (Life-Threatening)
  Sender: FDA-Public Use
  Company Number: KR-TAKEDA-2019TUS031220

PATIENT
  Age: 60 Year
  Sex: Female
  Weight: 62 kg

DRUGS (5)
  1. TIROMED [Concomitant]
     Indication: ABDOMINAL PAIN
     Dosage: 100 MILLIGRAM, BID
     Route: 048
     Dates: start: 20190502, end: 20190504
  2. CURAN [Concomitant]
     Active Substance: RANITIDINE HYDROCHLORIDE
     Indication: PROPHYLAXIS
     Dosage: 150 MILLIGRAM, BID
     Route: 048
     Dates: start: 20190309, end: 20190604
  3. TRANSAMIN [Concomitant]
     Active Substance: TRANEXAMIC ACID
     Indication: HAEMOPTYSIS
     Dosage: 250 MILLIGRAM, TID
     Route: 048
     Dates: start: 20190429, end: 20190514
  4. BRIGATINIB [Suspect]
     Active Substance: BRIGATINIB
     Indication: NON-SMALL CELL LUNG CANCER
     Dosage: 90 MILLIGRAM, QD
     Route: 048
     Dates: start: 20190513, end: 20190515
  5. CODEINE PHOSPHATE [Concomitant]
     Active Substance: CODEINE PHOSPHATE
     Indication: COUGH
     Dosage: 20 MILLIGRAM, TID
     Route: 048
     Dates: start: 20190429

REACTIONS (1)
  - Pulmonary oedema [Recovered/Resolved]

NARRATIVE: CASE EVENT DATE: 20190517
